FAERS Safety Report 25581061 (Version 1)
Quarter: 2025Q3

REPORT INFORMATION
  Report Type: Spontaneous
  Country: US (occurrence: US)
  Receive Date: 20250718
  Receipt Date: 20250718
  Transmission Date: 20251020
  Serious: No
  Sender: NOVO NORDISK
  Company Number: US-NOVOPROD-1455473

PATIENT
  Sex: Female

DRUGS (1)
  1. WEGOVY [Suspect]
     Active Substance: SEMAGLUTIDE
     Indication: Product used for unknown indication
     Dosage: 1 MG, QW
     Route: 058

REACTIONS (5)
  - Connective tissue disorder [Recovered/Resolved]
  - Swelling [Recovered/Resolved]
  - Injection site indentation [Recovered/Resolved]
  - Injection site discharge [Unknown]
  - Wrong technique in product usage process [Unknown]
